FAERS Safety Report 18052745 (Version 4)
Quarter: 2020Q3

REPORT INFORMATION
  Report Type: Report from Study
  Country: IT (occurrence: IT)
  Receive Date: 20200721
  Receipt Date: 20200903
  Transmission Date: 20201103
  Serious: Yes (Death, Life-Threatening, Hospitalization)
  Sender: FDA-Public Use
  Company Number: IT-GILEAD-2020-0484219

PATIENT
  Sex: Male

DRUGS (9)
  1. IDELALISIB [Suspect]
     Active Substance: IDELALISIB
     Dosage: 100 MG, BID
     Route: 048
     Dates: start: 20160304, end: 20160422
  2. BACTRIM [Concomitant]
     Active Substance: SULFAMETHOXAZOLE\TRIMETHOPRIM
     Indication: PROPHYLAXIS
     Route: 048
     Dates: start: 2015
  3. MYCOSTATIN [Concomitant]
     Active Substance: NYSTATIN
     Indication: PROPHYLAXIS
     Route: 002
     Dates: start: 201601
  4. PREDNISOLONE. [Concomitant]
     Active Substance: PREDNISOLONE
     Indication: B-CELL LYMPHOMA
     Route: 048
     Dates: start: 20160122
  5. PANTOPRAZOLO [Concomitant]
     Active Substance: PANTOPRAZOLE SODIUM
     Indication: PROPHYLAXIS
     Route: 048
     Dates: start: 20160122
  6. LAMIVUDINA [Concomitant]
     Active Substance: LAMIVUDINE
     Indication: PROPHYLAXIS
     Route: 048
     Dates: start: 2015
  7. IDELALISIB [Suspect]
     Active Substance: IDELALISIB
     Indication: B-CELL LYMPHOMA
     Dosage: 150 MG
     Route: 048
     Dates: start: 20160122, end: 20160226
  8. FILGRASTI M [Concomitant]
     Indication: PROPHYLAXIS
     Route: 058
     Dates: start: 20160122
  9. RETACRIT [EPOETIN ZETA] [Concomitant]
     Active Substance: ERYTHROPOIETIN
     Indication: EVIDENCE BASED TREATMENT
     Route: 058
     Dates: start: 20160122

REACTIONS (1)
  - Pneumonia [Fatal]

NARRATIVE: CASE EVENT DATE: 20160422
